FAERS Safety Report 4317929-5 (Version None)
Quarter: 2004Q1

REPORT INFORMATION
  Report Type: 
  Country: None (occurrence: None)
  Receive Date: 20040316
  Receipt Date: 20040312
  Transmission Date: 20041129
  Serious: Yes (Hospitalization)
  Sender: FDA-Public Use
  Company Number: JP-ROCHE-361532

PATIENT
  Sex: Male

DRUGS (1)
  1. PANALDINE [Suspect]
     Indication: CORONARY ARTERY STENOSIS
     Route: 048

REACTIONS (1)
  - PYREXIA [None]
